FAERS Safety Report 10908635 (Version 1)
Quarter: 2015Q1

REPORT INFORMATION
  Report Type: Spontaneous
  Country: GB (occurrence: GB)
  Receive Date: 20150312
  Receipt Date: 20150312
  Transmission Date: 20150721
  Serious: Yes (Other)
  Sender: FDA-Public Use
  Company Number: GB-TEVA-546296ACC

PATIENT
  Age: 57 Year
  Sex: Male

DRUGS (1)
  1. METRONIDAZOLE. [Suspect]
     Active Substance: METRONIDAZOLE
     Indication: DENTAL CARE
     Dosage: 1200 MILLIGRAM DAILY; HAD TAKEN 4 TABLETS
     Route: 048
     Dates: start: 20150220, end: 20150221

REACTIONS (6)
  - Malaise [Recovered/Resolved]
  - Glassy eyes [Recovered/Resolved]
  - Cerebrovascular accident [Recovered/Resolved]
  - Migraine [Recovered/Resolved]
  - Headache [Recovered/Resolved]
  - Loss of consciousness [Recovered/Resolved]

NARRATIVE: CASE EVENT DATE: 20150220
